FAERS Safety Report 4868775-5 (Version None)
Quarter: 2005Q4

REPORT INFORMATION
  Report Type: 
  Country: None (occurrence: None)
  Receive Date: 20051223
  Receipt Date: 20051208
  Transmission Date: 20060501
  Serious: Yes (Other)
  Sender: FDA-Public Use
  Company Number: 220501

PATIENT
  Age: 45 Year
  Sex: Male

DRUGS (8)
  1. AVASTIN [Suspect]
     Indication: COLORECTAL CANCER METASTATIC
     Dosage: 577 MG, Q3W, INTRAVENOUS
     Route: 042
     Dates: start: 20041203, end: 20051024
  2. LOPERAMIDE HYDROCHLORIDE [Concomitant]
  3. OILATUM EMOLLIENT (PARAFFIN, WOOL ALCOHOL) [Concomitant]
  4. ACETAMINOPHEN [Concomitant]
  5. ANUSOL-HC (CANADA) (HYDROCORTISONE ACETATE, ZINC SULFATE) [Concomitant]
  6. AMITRIPTYLINE HCL [Concomitant]
  7. NAPROXEN [Concomitant]
  8. CO-CODAMOL (ACETAMINOPHEN, CODEINE PHOSPHATE) [Concomitant]

REACTIONS (9)
  - ALANINE AMINOTRANSFERASE INCREASED [None]
  - BLOOD ALKALINE PHOSPHATASE INCREASED [None]
  - COLON CANCER METASTATIC [None]
  - DISEASE PROGRESSION [None]
  - LIVER DISORDER [None]
  - METASTASIS [None]
  - RECTAL CANCER [None]
  - RECTAL HAEMORRHAGE [None]
  - VIRAL INFECTION [None]
